FAERS Safety Report 25044852 (Version 5)
Quarter: 2025Q3

REPORT INFORMATION
  Report Type: Report from Study
  Country: US (occurrence: US)
  Receive Date: 20250306
  Receipt Date: 20250919
  Transmission Date: 20251021
  Serious: Yes (Hospitalization, Other)
  Sender: SUNOVION
  Company Number: US-SUMITOMO PHARMA SWITZERLAND GMBH-2025SPA002500

PATIENT
  Age: 75 Year
  Sex: Male

DRUGS (1)
  1. ORGOVYX [Suspect]
     Active Substance: RELUGOLIX
     Indication: Prostate cancer
     Dosage: 120 MG, QD
     Route: 048
     Dates: start: 20241225

REACTIONS (10)
  - Peripheral arterial occlusive disease [Unknown]
  - Cardiac failure congestive [Unknown]
  - Road traffic accident [Unknown]
  - Mobility decreased [Unknown]
  - Neuralgia [Unknown]
  - Dizziness [Unknown]
  - Back pain [Unknown]
  - Hot flush [Recovering/Resolving]
  - Anaemia [Unknown]
  - Incorrect dose administered [Recovered/Resolved]

NARRATIVE: CASE EVENT DATE: 20250724
